FAERS Safety Report 6919568-6 (Version None)
Quarter: 2010Q3

REPORT INFORMATION
  Report Type: 
  Country: None (occurrence: None)
  Receive Date: 20100811
  Receipt Date: 20100803
  Transmission Date: 20110219
  Serious: Yes (Other)
  Sender: FDA-Public Use
  Company Number: US-CELGENEUS-163-21880-10061248

PATIENT
  Sex: Female

DRUGS (4)
  1. REVLIMID [Suspect]
     Route: 048
     Dates: start: 20090401, end: 20100201
  2. REVLIMID [Suspect]
     Dosage: 10MG-20MG
     Route: 048
     Dates: start: 20080701
  3. REVLIMID [Suspect]
     Dosage: 10MG-25MG
     Route: 048
     Dates: start: 20080217
  4. REVLIMID [Suspect]
     Route: 048
     Dates: start: 20100401, end: 20100615

REACTIONS (3)
  - BRONCHITIS [None]
  - NEUTROPENIA [None]
  - ORAL SURGERY [None]
